FAERS Safety Report 6555628-X (Version None)
Quarter: 2010Q1

REPORT INFORMATION
  Report Type: 
  Country: None (occurrence: None)
  Receive Date: 20100128
  Receipt Date: 20100119
  Transmission Date: 20100710
  Serious: Yes (Hospitalization)
  Sender: FDA-Public Use
  Company Number: FR-KINGPHARMUSA00001-K201000079

PATIENT
  Age: 67 Year
  Sex: Male

DRUGS (8)
  1. ALTACE [Suspect]
     Indication: HYPERTENSION
     Dosage: UNK
     Route: 048
     Dates: start: 20090210
  2. VERAPAMIL [Suspect]
     Indication: ATRIAL FIBRILLATION
     Dosage: 120 MG, BID
     Route: 048
     Dates: start: 20090210
  3. VERAPAMIL [Suspect]
     Indication: HYPERTENSION
  4. FLECAINIDE [Suspect]
     Indication: ATRIAL FIBRILLATION
     Dosage: 150 MG, BID
     Route: 048
     Dates: start: 20090210
  5. MARCUMAR [Concomitant]
     Dosage: UNK
     Dates: start: 20090210
  6. DELMUNO [Concomitant]
     Dosage: UNK
     Dates: start: 20090210
  7. FELODIPINE [Concomitant]
     Dosage: UNK
     Dates: start: 20090210
  8. HYDROCHLOROTHIAZIDE [Suspect]
     Indication: HYPERTENSION
     Dosage: UNK
     Route: 048
     Dates: start: 20090210

REACTIONS (3)
  - BRADYCARDIA [None]
  - HYPOTENSION [None]
  - SYNCOPE [None]
